FAERS Safety Report 8215485 (Version 3)
Quarter: 2013Q1

REPORT INFORMATION
  Report Type: Spontaneous
  Country: US (occurrence: US)
  Receive Date: 20111031
  Receipt Date: 20130124
  Transmission Date: 20140127
  Serious: Yes (Hospitalization)
  Sender: FDA-Public Use
  Company Number: US-BIOGENIDEC-2011BI040397

PATIENT
  Age: 46 Year
  Sex: Female

DRUGS (3)
  1. AVONEX [Suspect]
     Indication: MULTIPLE SCLEROSIS
     Route: 030
     Dates: start: 20011020, end: 200307
  2. AVONEX [Suspect]
     Indication: MULTIPLE SCLEROSIS
     Route: 030
     Dates: start: 200308
  3. BACLOFEN [Concomitant]

REACTIONS (3)
  - Drug delivery device implantation [Recovered/Resolved]
  - Patient-device incompatibility [Not Recovered/Not Resolved]
  - Implant site infection [Not Recovered/Not Resolved]
